FAERS Safety Report 5128780-0 (Version None)
Quarter: 2006Q4

REPORT INFORMATION
  Report Type: 
  Country: None (occurrence: None)
  Receive Date: 20061011
  Receipt Date: 20060928
  Transmission Date: 20070319
  Serious: Yes (Death, Other)
  Sender: FDA-Public Use
  Company Number: 2006122814

PATIENT
  Sex: Male

DRUGS (2)
  1. BEXTRA [Suspect]
     Dates: start: 20041004, end: 20050106
  2. VIOXX [Suspect]
     Dates: start: 20010126, end: 20040930

REACTIONS (1)
  - CEREBROVASCULAR ACCIDENT [None]
